FAERS Safety Report 21644322 (Version 1)
Quarter: 2022Q4

REPORT INFORMATION
  Report Type: Spontaneous
  Country: FR (occurrence: FR)
  Receive Date: 20221125
  Receipt Date: 20221125
  Transmission Date: 20230113
  Serious: Yes (Other)
  Sender: FDA-Public Use
  Company Number: FR-SA-SAC20221124000149

PATIENT
  Age: 20 Year
  Sex: Male

DRUGS (1)
  1. AUBAGIO [Suspect]
     Active Substance: TERIFLUNOMIDE
     Indication: Multiple sclerosis
     Route: 065
     Dates: start: 20220929

REACTIONS (7)
  - Bronchiolitis [Unknown]
  - Pneumonitis [Recovering/Resolving]
  - Pyrexia [Recovering/Resolving]
  - C-reactive protein abnormal [Recovering/Resolving]
  - Fatigue [Unknown]
  - Musculoskeletal chest pain [Unknown]
  - Weight decreased [Unknown]

NARRATIVE: CASE EVENT DATE: 20221001
